FAERS Safety Report 10818136 (Version 1)
Quarter: 2015Q1

REPORT INFORMATION
  Report Type: Spontaneous
  Country: US (occurrence: US)
  Receive Date: 20150218
  Receipt Date: 20150218
  Transmission Date: 20150721
  Serious: No
  Sender: FDA-Public Use
  Company Number: US-GLAXOSMITHKLINE-US2015000360

PATIENT
  Age: 72 Year
  Sex: Male
  Weight: 61.22 kg

DRUGS (8)
  1. HYDROCODONE [Concomitant]
     Active Substance: HYDROCODONE
  2. ASPIRIN (BABY) [Concomitant]
  3. CLOPIDOGREL [Concomitant]
     Active Substance: CLOPIDOGREL BISULFATE
  4. ELIQUIS [Concomitant]
     Active Substance: APIXABAN
  5. ONDANSETRON [Concomitant]
     Active Substance: ONDANSETRON
  6. ATENOLOL. [Concomitant]
     Active Substance: ATENOLOL
  7. PREDNISONE. [Concomitant]
     Active Substance: PREDNISONE
  8. VOTRIENT [Suspect]
     Active Substance: PAZOPANIB HYDROCHLORIDE
     Indication: RENAL CELL CARCINOMA
     Dosage: 800 MG, QD
     Route: 048
     Dates: start: 20141027

REACTIONS (8)
  - Penile blister [Not Recovered/Not Resolved]
  - Penile burning sensation [Not Recovered/Not Resolved]
  - Urinary incontinence [Not Recovered/Not Resolved]
  - Dry skin [Not Recovered/Not Resolved]
  - Penile swelling [Not Recovered/Not Resolved]
  - Penile erythema [Not Recovered/Not Resolved]
  - Genital rash [Not Recovered/Not Resolved]
  - Penile pain [Not Recovered/Not Resolved]

NARRATIVE: CASE EVENT DATE: 20141224
